FAERS Safety Report 4825755-3 (Version None)
Quarter: 2005Q4

REPORT INFORMATION
  Report Type: 
  Country: None (occurrence: None)
  Receive Date: 20051109
  Receipt Date: 20051027
  Transmission Date: 20060501
  Serious: Yes (Other)
  Sender: FDA-Public Use
  Company Number: 2005138983

PATIENT
  Age: 35 Year
  Sex: Female
  Weight: 53.978 kg

DRUGS (1)
  1. DIFLUCAN [Suspect]
     Indication: VAGINAL CANDIDIASIS
     Dosage: 150 MG (150 MG, 1 IN 1 D),
     Dates: start: 20050930, end: 20050930

REACTIONS (8)
  - DRUG INEFFECTIVE [None]
  - ERYTHEMA [None]
  - SWELLING [None]
  - URETHRAL DISORDER [None]
  - VAGINAL PAIN [None]
  - VAGINAL SWELLING [None]
  - VULVAL DISORDER [None]
  - WHITE BLOOD CELL COUNT INCREASED [None]
